FAERS Safety Report 18408601 (Version 2)
Quarter: 2020Q4

REPORT INFORMATION
  Report Type: Spontaneous
  Country: US (occurrence: US)
  Receive Date: 20201020
  Receipt Date: 20201118
  Transmission Date: 20210114
  Serious: No
  Sender: FDA-Public Use
  Company Number: US-ASTRAZENECA-2020SF32147

PATIENT
  Sex: Female
  Weight: 90.7 kg

DRUGS (3)
  1. METFORMIN [Concomitant]
     Active Substance: METFORMIN HYDROCHLORIDE
     Indication: BLOOD GLUCOSE ABNORMAL
  2. ONGLYZA [Suspect]
     Active Substance: SAXAGLIPTIN HYDROCHLORIDE
     Indication: BLOOD GLUCOSE ABNORMAL
     Route: 048
     Dates: start: 2010, end: 2017
  3. BYDUREON BCISE [Suspect]
     Active Substance: EXENATIDE
     Indication: ILL-DEFINED DISORDER
     Route: 058
     Dates: start: 2017

REACTIONS (7)
  - Memory impairment [Not Recovered/Not Resolved]
  - Incorrect dose administered by product [Unknown]
  - Injection site haemorrhage [Unknown]
  - Device issue [Unknown]
  - Blood glucose increased [Unknown]
  - Injection site mass [Not Recovered/Not Resolved]
  - Drug ineffective [Unknown]
